FAERS Safety Report 21805697 (Version 3)
Quarter: 2023Q2

REPORT INFORMATION
  Report Type: Spontaneous
  Country: US (occurrence: US)
  Receive Date: 20230102
  Receipt Date: 20230524
  Transmission Date: 20230722
  Serious: Yes (Other)
  Sender: FDA-Public Use
  Company Number: US-BRISTOL-MYERS SQUIBB COMPANY-2023-000090

PATIENT
  Age: 77 Year
  Sex: Female
  Weight: 54.57 kg

DRUGS (1)
  1. REVLIMID [Suspect]
     Active Substance: LENALIDOMIDE
     Indication: Myelodysplastic syndrome
     Dosage: FREQUENCY-3W, 1W OFF
     Route: 048
     Dates: start: 20221201

REACTIONS (7)
  - Tongue discomfort [Unknown]
  - Dry mouth [Unknown]
  - Diarrhoea [Recovering/Resolving]
  - Vision blurred [Recovering/Resolving]
  - Blood thyroid stimulating hormone increased [Recovering/Resolving]
  - Haemoglobin decreased [Recovering/Resolving]
  - Off label use [Unknown]
